FAERS Safety Report 16148403 (Version 1)
Quarter: 2019Q2

REPORT INFORMATION
  Report Type: Spontaneous
  Country: CN (occurrence: CN)
  Receive Date: 20190402
  Receipt Date: 20190402
  Transmission Date: 20190711
  Serious: Yes (Hospitalization)
  Sender: FDA-Public Use
  Company Number: CN-PFIZER INC-2019138266

PATIENT
  Age: 76 Year
  Sex: Male

DRUGS (3)
  1. PLAVIX [Concomitant]
     Active Substance: CLOPIDOGREL BISULFATE
     Indication: CEREBRAL INFARCTION
     Dosage: 75 MG, 1X/DAY
     Route: 048
     Dates: start: 20190318, end: 20190325
  2. TAZOCIN [Suspect]
     Active Substance: PIPERACILLIN SODIUM\TAZOBACTAM SODIUM
     Indication: JOINT ABSCESS
     Dosage: 4.5 G, 3X/DAY
     Route: 041
     Dates: start: 20190320, end: 20190321
  3. ADALAT [Concomitant]
     Active Substance: NIFEDIPINE
     Indication: JOINT ABSCESS
     Dosage: 30 MG, 1X/DAY
     Route: 048
     Dates: start: 20190314, end: 20190325

REACTIONS (4)
  - Rash [Recovering/Resolving]
  - Rash maculo-papular [Recovering/Resolving]
  - Pruritus [Recovering/Resolving]
  - Drug eruption [Recovering/Resolving]

NARRATIVE: CASE EVENT DATE: 20190320
